FAERS Safety Report 5988140-7 (Version None)
Quarter: 2008Q4

REPORT INFORMATION
  Report Type: 
  Country: None (occurrence: None)
  Receive Date: 20081208
  Receipt Date: 20081208
  Transmission Date: 20090506
  Serious: No
  Sender: FDA-Public Use
  Company Number: None

PATIENT

DRUGS (1)
  1. TRIAMTERENE [Suspect]

REACTIONS (4)
  - ERYTHEMA [None]
  - RASH PRURITIC [None]
  - SUNBURN [None]
  - URTICARIA [None]
